FAERS Safety Report 9373169 (Version 1)
Quarter: 2013Q2

REPORT INFORMATION
  Report Type: Report from Study
  Country: US (occurrence: US)
  Receive Date: 20130627
  Receipt Date: 20130627
  Transmission Date: 20140414
  Serious: Yes (Other)
  Sender: FDA-Public Use
  Company Number: PHEH2013US013603

PATIENT
  Sex: Female

DRUGS (7)
  1. GILENYA [Suspect]
     Indication: MULTIPLE SCLEROSIS
     Dosage: 0.5 MG, QD
     Route: 048
     Dates: start: 201106, end: 201109
  2. BACLOFEN [Concomitant]
     Dosage: 10 MG, UNK
  3. MULTI-VIT [Concomitant]
  4. CHROMIUM [Concomitant]
     Dosage: 200 UG, UNK
  5. VITAMIIN C [Concomitant]
     Dosage: 500 MG, UNK
  6. CALCIUM +VIT D [Concomitant]
  7. GLUCOSAMIN CHONDR [Concomitant]

REACTIONS (1)
  - Forced expiratory volume decreased [Unknown]
